FAERS Safety Report 13813469 (Version 2)
Quarter: 2017Q3

REPORT INFORMATION
  Report Type: Report from Study
  Country: IN (occurrence: IN)
  Receive Date: 20170730
  Receipt Date: 20170817
  Transmission Date: 20171127
  Serious: Yes (Hospitalization)
  Sender: FDA-Public Use
  Company Number: PHHO2017IN008757

PATIENT
  Age: 24 Year
  Sex: Male
  Weight: 59 kg

DRUGS (5)
  1. NO TREATMENT RECEIVED [Suspect]
     Active Substance: UNSPECIFIED INGREDIENT
     Indication: RENAL TRANSPLANT
     Dosage: NO TREATMENT
     Route: 065
  2. WYSOLONE [Suspect]
     Active Substance: PREDNISOLONE
     Indication: PROPHYLAXIS
     Dosage: 5 MG, QD
     Route: 048
     Dates: start: 20151223
  3. TACSANT [Suspect]
     Active Substance: TACROLIMUS
     Dosage: 4 MG, BID
     Route: 048
     Dates: start: 20151223
  4. MYFORTIC [Suspect]
     Active Substance: MYCOPHENOLATE SODIUM
     Indication: RENAL TRANSPLANT
     Dosage: 540 MG, BID
     Route: 048
     Dates: start: 20151223
  5. NICARDIA [Concomitant]
     Indication: HYPERTENSION
     Dosage: 20 MG, BID
     Route: 048
     Dates: start: 20151223

REACTIONS (5)
  - Tuberculosis [Recovering/Resolving]
  - Abdominal abscess [Recovering/Resolving]
  - Abdominal pain [Recovering/Resolving]
  - Dehydration [Recovered/Resolved]
  - Intestinal obstruction [Recovering/Resolving]

NARRATIVE: CASE EVENT DATE: 20070705
